FAERS Safety Report 21860456 (Version 1)
Quarter: 2023Q1

REPORT INFORMATION
  Report Type: Spontaneous
  Country: US (occurrence: US)
  Receive Date: 20230113
  Receipt Date: 20230113
  Transmission Date: 20230417
  Serious: Yes (Other)
  Sender: FDA-Public Use
  Company Number: US-009507513-2301USA002631

PATIENT
  Sex: Female

DRUGS (1)
  1. TICE BCG [Suspect]
     Active Substance: BACILLUS CALMETTE-GUERIN SUBSTRAIN TICE LIVE ANTIGEN
     Indication: Bladder transitional cell carcinoma
     Dosage: UNK

REACTIONS (7)
  - Pneumonia [Unknown]
  - Asthenia [Unknown]
  - Hypertonic bladder [Unknown]
  - Colitis [Unknown]
  - Discomfort [Unknown]
  - Stress [Unknown]
  - Depression [Unknown]
